FAERS Safety Report 7103850-6 (Version None)
Quarter: 2010Q4

REPORT INFORMATION
  Report Type: 
  Country: None (occurrence: None)
  Receive Date: 20101115
  Receipt Date: 20101109
  Transmission Date: 20110411
  Serious: Yes (Other)
  Sender: FDA-Public Use
  Company Number: US-PFIZER INC-2010144371

PATIENT
  Sex: Female

DRUGS (4)
  1. NEURONTIN [Suspect]
     Indication: BIPOLAR I DISORDER
     Dosage: UNK
  2. LYRICA [Suspect]
     Indication: BIPOLAR I DISORDER
     Dosage: 25 MG, UNK
  3. ABILIFY [Suspect]
     Dosage: UNK
  4. TRANXENE [Concomitant]
     Dosage: UNK

REACTIONS (2)
  - DEPRESSION [None]
  - TARDIVE DYSKINESIA [None]
